FAERS Safety Report 15584992 (Version 1)
Quarter: 2018Q4

REPORT INFORMATION
  Report Type: Spontaneous
  Country: BE (occurrence: BE)
  Receive Date: 20181102
  Receipt Date: 20181102
  Transmission Date: 20190205
  Serious: Yes (Hospitalization)
  Sender: FDA-Public Use
  Company Number: BE-MYLANLABS-2018M1083063

PATIENT
  Age: 46 Year
  Sex: Female

DRUGS (4)
  1. CALCIUM FOLINATE [Suspect]
     Active Substance: LEUCOVORIN CALCIUM
     Indication: APPENDIX CANCER
     Dosage: 20 MG/M2
     Route: 042
  2. MITOMYCIN. [Suspect]
     Active Substance: MITOMYCIN
     Indication: APPENDIX CANCER
     Dosage: 15 MG/M2; AT 42 DEG C
     Route: 033
  3. FLUOROURACIL. [Suspect]
     Active Substance: FLUOROURACIL
     Indication: APPENDIX CANCER
     Dosage: 800 MG/M2
     Route: 042
  4. DOXORUBICIN [Suspect]
     Active Substance: DOXORUBICIN
     Indication: APPENDIX CANCER
     Dosage: 15 MG/M2; AT 42 DEG C
     Route: 033

REACTIONS (1)
  - Encapsulating peritoneal sclerosis [Recovered/Resolved]
